FAERS Safety Report 7465523-X (Version None)
Quarter: 2011Q2

REPORT INFORMATION
  Report Type: 
  Country: None (occurrence: None)
  Receive Date: 20110509
  Receipt Date: 20110503
  Transmission Date: 20111010
  Serious: Yes (Hospitalization)
  Sender: FDA-Public Use
  Company Number: GB-ROCHE-775041

PATIENT
  Sex: Female
  Weight: 89 kg

DRUGS (8)
  1. PREDNISOLONE [Concomitant]
  2. COZAAR [Concomitant]
  3. CALCICHEW D3 [Concomitant]
  4. RITUXAN [Suspect]
     Indication: VASCULITIS
     Route: 065
  5. OMEPRAZOLE [Concomitant]
  6. MYCOPHENOLATE MOFETIL [Suspect]
     Indication: VASCULITIS
     Dosage: FREQUENCY: 3 PULSES
     Route: 065
  7. BACTRIM [Concomitant]
  8. MYCOSTATIN [Concomitant]
     Dosage: FREQUENCY: DAILY

REACTIONS (1)
  - PULMONARY EMBOLISM [None]
